FAERS Safety Report 6117250-9 (Version None)
Quarter: 2009Q1

REPORT INFORMATION
  Report Type: 
  Country: None (occurrence: None)
  Receive Date: 20090314
  Receipt Date: 20090109
  Transmission Date: 20090719
  Serious: No
  Sender: FDA-Public Use
  Company Number: US-ABBOTT-09P-163-0496618-00

PATIENT
  Sex: Male

DRUGS (2)
  1. HUMIRA [Suspect]
     Indication: PSORIASIS
     Dates: start: 20081101
  2. HUMIRA [Suspect]
     Indication: RHEUMATOID ARTHRITIS

REACTIONS (5)
  - DRUG INEFFECTIVE [None]
  - MUSCULAR WEAKNESS [None]
  - OEDEMA PERIPHERAL [None]
  - PAIN IN EXTREMITY [None]
  - PARAESTHESIA [None]
